FAERS Safety Report 4275524-0 (Version None)
Quarter: 2004Q1

REPORT INFORMATION
  Report Type: 
  Country: None (occurrence: None)
  Receive Date: 20040121
  Receipt Date: 20040106
  Transmission Date: 20041129
  Serious: Yes (Other)
  Sender: FDA-Public Use
  Company Number: JP-GLAXOSMITHKLINE-B0319085A

PATIENT
  Age: 61 Year
  Sex: Male

DRUGS (20)
  1. HYCAMTIN [Suspect]
     Indication: SMALL CELL LUNG CANCER STAGE UNSPECIFIED
     Dosage: 1.7MG PER DAY
     Dates: start: 20030710, end: 20030829
  2. ESTAZOLAM [Concomitant]
     Dosage: 2MG PER DAY
     Route: 048
     Dates: start: 20030725
  3. BROTIZOLAM [Concomitant]
     Dosage: 1TAB PER DAY
     Route: 048
     Dates: start: 20030220
  4. FENOFIBRATE [Concomitant]
     Dosage: 150MG PER DAY
     Route: 048
     Dates: start: 20021128, end: 20030728
  5. MAGNESIUM OXIDE [Concomitant]
     Dosage: .5G PER DAY
     Route: 048
  6. SENNOSIDE [Concomitant]
     Dosage: 2TABS PER DAY
     Route: 048
     Dates: start: 20020728
  7. CODEINE [Concomitant]
     Dosage: 6G PER DAY
     Route: 048
     Dates: start: 20030220, end: 20030908
  8. FUDOSTEINE [Concomitant]
     Dosage: 6TABS PER DAY
     Route: 048
     Dates: start: 20030220
  9. NAPROXEN [Concomitant]
     Dosage: 3TABS PER DAY
     Route: 048
     Dates: start: 20030703
  10. SALINE [Concomitant]
     Route: 042
     Dates: start: 20030710, end: 20030829
  11. RANITIDINE [Concomitant]
     Route: 042
     Dates: start: 20030710, end: 20030830
  12. AZASETRON HYDROCHLORIDE [Concomitant]
     Route: 042
     Dates: start: 20030710, end: 20030829
  13. CIMETIDINE HCL [Concomitant]
     Dosage: 2TABS PER DAY
     Route: 048
     Dates: start: 20030730
  14. DOMPERIDONE [Concomitant]
     Dosage: 6TABS PER DAY
     Route: 048
     Dates: start: 20030804, end: 20030821
  15. LENOGRASTIM [Concomitant]
     Dosage: 100UG PER DAY
     Route: 042
     Dates: start: 20030718, end: 20030905
  16. CEFDITOREN PIVOXIL [Concomitant]
     Dosage: 3TABS PER DAY
     Route: 048
     Dates: start: 20030818, end: 20030828
  17. CEFCAPENE PIVOXIL HYDROCHLORIDE [Concomitant]
     Dosage: 3TABS PER DAY
     Route: 048
     Dates: start: 20030830, end: 20030901
  18. PICIBANIL [Concomitant]
     Dates: start: 20030819, end: 20030820
  19. CEFTRIAXONE [Concomitant]
     Dosage: 2G PER DAY
     Route: 042
     Dates: start: 20030829, end: 20030830
  20. GLIMEPIRIDE [Concomitant]
     Dosage: 1MG PER DAY
     Route: 048
     Dates: start: 20030724

REACTIONS (10)
  - ANAEMIA [None]
  - BLOOD ALBUMIN DECREASED [None]
  - BLOOD POTASSIUM INCREASED [None]
  - GLUCOSE URINE PRESENT [None]
  - GRANULOCYTE COUNT DECREASED [None]
  - PNEUMONIA [None]
  - PROTEIN URINE PRESENT [None]
  - RENAL IMPAIRMENT [None]
  - THROMBOCYTOPENIA [None]
  - WHITE BLOOD CELL COUNT DECREASED [None]
